FAERS Safety Report 13298833 (Version 1)
Quarter: 2017Q1

REPORT INFORMATION
  Report Type: Spontaneous
  Country: AU (occurrence: AU)
  Receive Date: 20170306
  Receipt Date: 20170306
  Transmission Date: 20170428
  Serious: Yes (Hospitalization)
  Sender: FDA-Public Use
  Company Number: AU-SA-2017SA030628

PATIENT
  Age: 57 Year
  Sex: Female

DRUGS (2)
  1. METHPRED [Concomitant]
     Route: 042
     Dates: start: 20170222
  2. LEMTRADA [Suspect]
     Active Substance: ALEMTUZUMAB
     Route: 042

REACTIONS (2)
  - Immune thrombocytopenic purpura [Unknown]
  - Laboratory test abnormal [Unknown]
